FAERS Safety Report 25780498 (Version 1)
Quarter: 2025Q3

REPORT INFORMATION
  Report Type: Spontaneous
  Country: EU (occurrence: EU)
  Receive Date: 20250909
  Receipt Date: 20250909
  Transmission Date: 20251021
  Serious: Yes (Life-Threatening, Hospitalization)
  Sender: VIIV
  Company Number: EU-VIIV HEALTHCARE ULC-IE2025115481

PATIENT
  Age: 54 Year
  Sex: Female

DRUGS (1)
  1. FOSTEMSAVIR [Suspect]
     Active Substance: FOSTEMSAVIR
     Indication: HIV infection
     Dosage: 600 MG, BID

REACTIONS (4)
  - Product use issue [Unknown]
  - Vomiting [Unknown]
  - Gastrointestinal disorder [Unknown]
  - Viral load increased [Unknown]
